FAERS Safety Report 23292929 (Version 2)
Quarter: 2024Q1

REPORT INFORMATION
  Report Type: Spontaneous
  Country: TR (occurrence: TR)
  Receive Date: 20231213
  Receipt Date: 20240102
  Transmission Date: 20240410
  Serious: Yes (Other)
  Sender: FDA-Public Use
  Company Number: TR-JNJFOC-20231225159

PATIENT
  Age: 22 Year
  Sex: Female
  Weight: 80 kg

DRUGS (2)
  1. REMICADE [Suspect]
     Active Substance: INFLIXIMAB
     Indication: Colitis ulcerative
     Dosage: DOSE REPORTED AS: 50 AND RECEIVED DOSE: 400
     Route: 041
     Dates: start: 20191029, end: 20230322
  2. MESALAMINE [Concomitant]
     Active Substance: MESALAMINE

REACTIONS (6)
  - Confusional state [Recovered/Resolved]
  - Vision blurred [Recovered/Resolved]
  - Bradykinesia [Recovered/Resolved]
  - Balance disorder [Recovered/Resolved]
  - Cognitive disorder [Recovered/Resolved]
  - Dizziness [Recovered/Resolved]
